FAERS Safety Report 6882372-1 (Version None)
Quarter: 2010Q3

REPORT INFORMATION
  Report Type: 
  Country: None (occurrence: None)
  Receive Date: 20100727
  Receipt Date: 20100712
  Transmission Date: 20110219
  Serious: Yes (Other)
  Sender: FDA-Public Use
  Company Number: 2010S1000070

PATIENT
  Age: 7 Day
  Sex: Female
  Weight: 0.69 kg

DRUGS (4)
  1. INOMAX [Suspect]
     Indication: BRONCHOPULMONARY DYSPLASIA
     Dosage: 20 PPM;CONT;INH
     Route: 055
     Dates: start: 20100712
  2. INOMAX [Suspect]
     Indication: NEONATAL RESPIRATORY DISTRESS SYNDROME
     Dosage: 20 PPM;CONT;INH
     Route: 055
     Dates: start: 20100712
  3. INOMAX [Suspect]
     Indication: BRONCHOPULMONARY DYSPLASIA
     Dosage: 20 PPM; CONT; INH
     Route: 055
     Dates: start: 20100712
  4. INOMAX [Suspect]
     Indication: NEONATAL RESPIRATORY DISTRESS SYNDROME
     Dosage: 20 PPM; CONT; INH
     Route: 055
     Dates: start: 20100712

REACTIONS (2)
  - DEVICE LEAKAGE [None]
  - OXYGEN SATURATION DECREASED [None]
